FAERS Safety Report 10061379 (Version 3)
Quarter: 2014Q4

REPORT INFORMATION
  Report Type: Spontaneous
  Country: US (occurrence: US)
  Receive Date: 20140407
  Receipt Date: 20141027
  Transmission Date: 20150528
  Serious: Yes (Hospitalization)
  Sender: FDA-Public Use
  Company Number: US-JNJFOC-20140315427

PATIENT
  Sex: Male
  Weight: 86.18 kg

DRUGS (2)
  1. HALDOL [Suspect]
     Active Substance: HALOPERIDOL
     Indication: SCHIZOPHRENIA
     Dosage: ONCE TO TWICE A DAY
     Route: 048
     Dates: start: 1977, end: 1978
  2. HALDOL [Suspect]
     Active Substance: HALOPERIDOL
     Indication: SCHIZOPHRENIA
     Route: 030
     Dates: start: 1977, end: 1978

REACTIONS (34)
  - Extrapyramidal disorder [Unknown]
  - Speech disorder [Unknown]
  - Tooth loss [Not Recovered/Not Resolved]
  - Oesophageal disorder [Not Recovered/Not Resolved]
  - Dry mouth [Not Recovered/Not Resolved]
  - Dysphagia [Not Recovered/Not Resolved]
  - Dry eye [Unknown]
  - Sensory disturbance [Unknown]
  - Dysgeusia [Unknown]
  - Eye movement disorder [Not Recovered/Not Resolved]
  - Hypertension [Not Recovered/Not Resolved]
  - Nail disorder [Not Recovered/Not Resolved]
  - Asthenia [Not Recovered/Not Resolved]
  - Hair colour changes [Unknown]
  - Disturbance in attention [Unknown]
  - Dry eye [Not Recovered/Not Resolved]
  - Gait disturbance [Unknown]
  - Temporomandibular joint syndrome [Not Recovered/Not Resolved]
  - Tongue discolouration [Not Recovered/Not Resolved]
  - Ear disorder [Not Recovered/Not Resolved]
  - Cardiac murmur [Unknown]
  - Gastrointestinal motility disorder [Not Recovered/Not Resolved]
  - Bruxism [Not Recovered/Not Resolved]
  - Nervous system disorder [Not Recovered/Not Resolved]
  - Dry throat [Not Recovered/Not Resolved]
  - Tongue dry [Not Recovered/Not Resolved]
  - Nasal dryness [Not Recovered/Not Resolved]
  - Hallucination, auditory [Not Recovered/Not Resolved]
  - Depression [Unknown]
  - Lip dry [Not Recovered/Not Resolved]
  - Palpitations [Not Recovered/Not Resolved]
  - Dyspepsia [Not Recovered/Not Resolved]
  - Oral pain [Recovered/Resolved]
  - Dyspnoea [Unknown]

NARRATIVE: CASE EVENT DATE: 1977
